FAERS Safety Report 10198056 (Version 1)
Quarter: 2014Q2

REPORT INFORMATION
  Report Type: Spontaneous
  Country: US (occurrence: US)
  Receive Date: 20140527
  Receipt Date: 20140527
  Transmission Date: 20141212
  Serious: No
  Sender: FDA-Public Use
  Company Number: US-NOVEN-13US006848

PATIENT
  Age: 6 Year
  Sex: Male

DRUGS (8)
  1. DAYTRANA [Suspect]
     Indication: ATTENTION DEFICIT/HYPERACTIVITY DISORDER
     Dosage: 20 MG, UNK
     Route: 062
     Dates: start: 201212
  2. DAYTRANA [Suspect]
     Dosage: 15 MG, UNK
     Route: 062
     Dates: start: 2013
  3. DAYTRANA [Suspect]
     Dosage: 10 MG, UNK
     Route: 062
     Dates: start: 201304
  4. PROZAC [Suspect]
     Dosage: 10 MG, UNK
     Route: 048
  5. PROZAC [Suspect]
     Dosage: 5 MG, QD
     Route: 048
     Dates: start: 20130513
  6. PROZAC [Suspect]
     Dosage: 5 MG, QD
     Route: 048
  7. PROZAC [Suspect]
     Dosage: 20 MG, QD
     Route: 048
  8. KLONOPIN [Concomitant]
     Route: 048

REACTIONS (9)
  - Serotonin syndrome [Recovered/Resolved]
  - Dyskinesia [Not Recovered/Not Resolved]
  - Vomiting [Not Recovered/Not Resolved]
  - Aggression [Recovered/Resolved]
  - Application site erythema [Not Recovered/Not Resolved]
  - Drug interaction [Recovered/Resolved]
  - Drug prescribing error [Unknown]
  - Incorrect dose administered [Unknown]
  - Tic [Unknown]
